FAERS Safety Report 20827433 (Version 1)
Quarter: 2022Q2

REPORT INFORMATION
  Report Type: Spontaneous
  Country: NL (occurrence: NL)
  Receive Date: 20220513
  Receipt Date: 20220513
  Transmission Date: 20220721
  Serious: Yes (Other)
  Sender: FDA-Public Use
  Company Number: None

PATIENT
  Sex: Female

DRUGS (9)
  1. HALOPERIDOL [Suspect]
     Active Substance: HALOPERIDOL
     Indication: Psychotic disorder
     Dosage: 3 MG,  BRAND NAME NOT SPECIFIED, START DATE : ASKU
     Dates: end: 20220405
  2. HALOPERIDOL [Suspect]
     Active Substance: HALOPERIDOL
     Dosage: 3 MG LATER 4 MG LATER 3 MG, BRAND NAME NOT SPECIFIED
     Dates: start: 20220227, end: 20220405
  3. HALOPERIDOL [Suspect]
     Active Substance: HALOPERIDOL
     Dosage: 4 MG, THERAPY START DATE AND END DATE : ASKU,   BRAND NAME NOT SPECIFIED
  4. HYDROCHLOROTHIAZIDE [Concomitant]
     Active Substance: HYDROCHLOROTHIAZIDE
     Dosage: BRAND NAME NOT SPECIFIED, THERAPY END DATE : ASKU
     Dates: start: 2013
  5. TRAMADOL [Concomitant]
     Active Substance: TRAMADOL
     Dosage: STRENGTH: 50 MG, BRAND NAME NOT SPECIFIED, THERAPY START DATE AND END DATE : ASKU
  6. SIMVASTATIN [Concomitant]
     Active Substance: SIMVASTATIN
     Dosage: SIMVASTATINE TABLET FO 10MG / BRAND NAME NOT SPECIFIED, THERAPY START DATE AND END DATE : ASKU
  7. ENALAPRIL [Concomitant]
     Active Substance: ENALAPRIL
     Dosage: BRAND NAME NOT SPECIFIED, STRENGTH: 10 MG, THERAPY END DATE : ASKU
     Dates: start: 2014
  8. HYPROMELLOSES [Concomitant]
     Active Substance: HYPROMELLOSES
     Dosage: THERAPY START DATE AND END DATE : ASKU,  BRAND NAME NOT SPECIFIED
  9. LORAZEPAM [Concomitant]
     Active Substance: LORAZEPAM
     Dosage: BRAND NAME NOT SPECIFIED, THERAPY START DATE AND END DATE : ASKU

REACTIONS (3)
  - Hallucination, auditory [Recovered/Resolved]
  - Peripheral swelling [Recovered/Resolved]
  - Gastrointestinal sounds abnormal [Recovered/Resolved]
